FAERS Safety Report 8579777-X (Version None)
Quarter: 2012Q2

REPORT INFORMATION
  Report Type: 
  Country: None (occurrence: None)
  Receive Date: 20120423
  Receipt Date: 20090324
  Transmission Date: 20120825
  Serious: Yes (Hospitalization)
  Sender: FDA-Public Use
  Company Number: PHHY2009US66582

PATIENT
  Age: 42 Year
  Sex: Male

DRUGS (1)
  1. EXJADE [Suspect]
     Dosage: 1500 MG, DAILY, ORAL
     Route: 048

REACTIONS (3)
  - SOMNOLENCE [None]
  - ABDOMINAL PAIN [None]
  - SICKLE CELL ANAEMIA WITH CRISIS [None]
